FAERS Safety Report 8205056-6 (Version None)
Quarter: 2012Q1

REPORT INFORMATION
  Report Type: 
  Country: None (occurrence: None)
  Receive Date: 20120313
  Receipt Date: 20120301
  Transmission Date: 20120608
  Serious: Yes (Hospitalization)
  Sender: FDA-Public Use
  Company Number: DE-ROCHE-1006190

PATIENT
  Sex: Male
  Weight: 104 kg

DRUGS (14)
  1. LEUCOVORIN CALCIUM [Suspect]
     Indication: BRONCHIAL CARCINOMA
     Route: 042
     Dates: start: 20101001, end: 20110201
  2. FLUOROURACIL [Suspect]
     Route: 042
     Dates: start: 20101001, end: 20110201
  3. OXALIPLATIN [Suspect]
     Indication: BRONCHIAL CARCINOMA
     Route: 042
     Dates: start: 20111005, end: 20111006
  4. FLUOROURACIL [Suspect]
     Route: 042
     Dates: start: 20110907, end: 20120201
  5. OXALIPLATIN [Suspect]
     Route: 042
     Dates: start: 20110907, end: 20120201
  6. AVASTIN [Suspect]
     Dates: start: 20110907, end: 20120201
  7. LEUCOVORIN CALCIUM [Suspect]
     Dates: start: 20110907, end: 20120201
  8. FLUOROURACIL [Suspect]
     Indication: BRONCHIAL CARCINOMA
     Route: 040
     Dates: start: 20111005, end: 20111006
  9. FLUOROURACIL [Suspect]
     Route: 041
     Dates: start: 20111005, end: 20111006
  10. OXALIPLATIN [Suspect]
     Route: 042
     Dates: start: 20101001, end: 20110201
  11. LEUCOVORIN CALCIUM [Concomitant]
     Indication: BRONCHIAL CARCINOMA
     Route: 042
     Dates: start: 20111005, end: 20111006
  12. AVASTIN [Suspect]
     Indication: BRONCHIAL CARCINOMA
     Route: 042
     Dates: start: 20101001, end: 20110201
  13. DEXAMETHASONE [Concomitant]
     Indication: BRONCHIAL CARCINOMA
     Route: 042
     Dates: start: 20111005, end: 20111006
  14. GRANISETRON HYDROCHLORIDE [Concomitant]
     Indication: BRONCHIAL CARCINOMA
     Route: 042
     Dates: start: 20111005, end: 20111006

REACTIONS (5)
  - SUBILEUS [None]
  - VOMITING [None]
  - DEHYDRATION [None]
  - DIARRHOEA [None]
  - ACUTE PRERENAL FAILURE [None]
